FAERS Safety Report 5931664-9 (Version None)
Quarter: 2008Q4

REPORT INFORMATION
  Report Type: 
  Country: None (occurrence: None)
  Receive Date: 20081027
  Receipt Date: 20081017
  Transmission Date: 20090506
  Serious: Yes (Life-Threatening, Hospitalization, Other)
  Sender: FDA-Public Use
  Company Number: FR-ELI_LILLY_AND_COMPANY-FR200803003238

PATIENT
  Age: 71 Year
  Sex: Male
  Weight: 98 kg

DRUGS (8)
  1. ALIMTA [Suspect]
     Indication: NON-SMALL CELL LUNG CANCER
     Dosage: 500 MG/M2 (1000MG) ON DAY ONE AND DAY 21.
     Route: 042
     Dates: start: 20080102, end: 20080201
  2. FOLIC ACID [Concomitant]
     Indication: VITAMIN SUPPLEMENTATION
     Dosage: UNK, UNKNOWN
     Route: 065
  3. VITAMIN B-12 [Concomitant]
     Indication: VITAMIN SUPPLEMENTATION
     Dosage: UNK, UNKNOWN
     Route: 065
  4. CORTICOSTEROIDS [Concomitant]
     Indication: PROPHYLAXIS
     Dosage: UNK, UNKNOWN
     Route: 065
  5. CLASTOBAN [Concomitant]
     Dosage: 1600 MG, DAILY (1/D)
     Route: 048
     Dates: end: 20080123
  6. DOLPRONE [Concomitant]
     Indication: PAIN
     Dosage: 3 G, DAILY (1/D)
     Route: 048
     Dates: start: 20080101
  7. TAREG [Concomitant]
     Indication: HYPERTENSION
     Dosage: 160 MG, DAILY (1/D)
     Route: 048
     Dates: end: 20080201
  8. LIPANTHYL [Concomitant]
     Indication: BLOOD CHOLESTEROL
     Dosage: 200 MG, DAILY (1/D)
     Route: 048

REACTIONS (10)
  - DEHYDRATION [None]
  - ENTEROCOLITIS INFECTIOUS [None]
  - FATIGUE [None]
  - GASTROINTESTINAL HAEMORRHAGE [None]
  - MALIGNANT NEOPLASM PROGRESSION [None]
  - METABOLIC DISORDER [None]
  - MUCOSAL INFLAMMATION [None]
  - PANCREATITIS ACUTE [None]
  - PANCYTOPENIA [None]
  - RENAL FAILURE [None]
